FAERS Safety Report 6305747-8 (Version None)
Quarter: 2009Q3

REPORT INFORMATION
  Report Type: 
  Country: None (occurrence: None)
  Receive Date: 20090812
  Receipt Date: 20070906
  Transmission Date: 20100115
  Serious: Yes (Hospitalization, Other)
  Sender: FDA-Public Use
  Company Number: US-ASTRAZENECA-2006UW27802

PATIENT
  Age: 36 Year
  Sex: Male
  Weight: 62.7 kg

DRUGS (21)
  1. SEROQUEL [Suspect]
     Indication: BIPOLAR DISORDER
     Route: 048
     Dates: start: 20030407, end: 20050818
  2. SEROQUEL [Suspect]
     Indication: DEPRESSION
     Route: 048
     Dates: start: 20030407, end: 20050818
  3. SEROQUEL [Suspect]
     Dosage: 25-800 MG
     Route: 048
     Dates: start: 20030407, end: 20070117
  4. SEROQUEL [Suspect]
     Dosage: 25-800 MG
     Route: 048
     Dates: start: 20030407, end: 20070117
  5. GEODON [Concomitant]
     Dosage: 80-120 MG
     Route: 048
     Dates: start: 20021010
  6. GEODON [Concomitant]
     Dates: start: 20060101
  7. ZYPREXA [Concomitant]
     Dates: start: 20020607, end: 20021011
  8. ABILIFY [Concomitant]
  9. CLONAZEPAM [Concomitant]
     Indication: ANXIETY
     Dosage: 0.5-4 MG
     Route: 048
     Dates: start: 20000120
  10. DIAZEPAM [Concomitant]
     Indication: ANXIETY
     Route: 048
     Dates: start: 20000508
  11. THORAZINE [Concomitant]
     Indication: AGITATION
     Route: 048
     Dates: start: 20000613
  12. ZOLOFT [Concomitant]
     Dosage: 50-100 MG
     Route: 048
     Dates: start: 20020610
  13. HYDROXYZINE HYDROCHLORIDE [Concomitant]
     Indication: ANXIETY
     Dosage: 10-100 MG
     Route: 048
     Dates: start: 20020610
  14. LITHIUM CARBONATE [Concomitant]
     Dosage: 300 MG ONE TABLET AT MORNING AND TWO AT EVENING
     Route: 048
     Dates: start: 20040802
  15. PROZAC [Concomitant]
     Dates: start: 20050417
  16. SKELAXIN [Concomitant]
     Route: 048
     Dates: start: 20060119
  17. NEURONTIN [Concomitant]
     Indication: CONVULSION
     Dosage: 600-900 MG
     Route: 048
     Dates: start: 20040601, end: 20060119
  18. HYDROCODONE BITARTRATE + ACETAMINOPHEN [Concomitant]
     Indication: PAIN
     Dosage: 5-7.5 MG/500 MG EVERY FOUR TO SIX HOURS
     Route: 048
     Dates: start: 20030809
  19. LEXAPRO [Concomitant]
     Dosage: 10-20 MG
     Route: 048
     Dates: start: 20021010
  20. WELLBUTRIN [Concomitant]
     Dosage: 200-300 MG
     Route: 048
     Dates: start: 20030708
  21. PAXIL [Concomitant]
     Dosage: 12.5-50 MG
     Route: 048
     Dates: start: 20021115

REACTIONS (9)
  - COMPLEX PARTIAL SEIZURES [None]
  - CONVULSION [None]
  - DIABETES MELLITUS [None]
  - DRUG WITHDRAWAL CONVULSIONS [None]
  - GRAND MAL CONVULSION [None]
  - HYPERGLYCAEMIA [None]
  - HYPOAESTHESIA [None]
  - HYPOGLYCAEMIA [None]
  - PANCREATITIS [None]
